FAERS Safety Report 6655160-9 (Version None)
Quarter: 2010Q1

REPORT INFORMATION
  Report Type: 
  Country: None (occurrence: None)
  Receive Date: 20100329
  Receipt Date: 20100322
  Transmission Date: 20100710
  Serious: Yes (Disabling, Other)
  Sender: FDA-Public Use
  Company Number: FR-NAPPMUNDI-GBR-2010-0006313

PATIENT
  Age: 37 Year
  Sex: Female

DRUGS (3)
  1. MORPHINE SULFATE [Suspect]
     Indication: SPINAL ANAESTHESIA
     Dosage: 150 MCG, UNK
     Route: 042
  2. BUPIVACAINE HCL [Suspect]
     Indication: SPINAL ANAESTHESIA
     Dosage: 12.5 MG, UNK
     Route: 042
  3. SUFENTANIL [Suspect]
     Indication: SPINAL ANAESTHESIA
     Dosage: 2.5 MCG, UNK
     Route: 042

REACTIONS (1)
  - SOMATOFORM DISORDER NEUROLOGIC [None]
